FAERS Safety Report 10454175 (Version 1)
Quarter: 2014Q3

REPORT INFORMATION
  Report Type: Spontaneous
  Country: US (occurrence: US)
  Receive Date: 20140915
  Receipt Date: 20140915
  Transmission Date: 20150326
  Serious: Yes (Life-Threatening, Hospitalization, Other)
  Sender: FDA-Public Use
  Company Number: US-ALKERMES INC.-ALK-2014-003500

PATIENT

DRUGS (1)
  1. VERAPAMIL HCL SR [Suspect]
     Active Substance: VERAPAMIL HYDROCHLORIDE
     Indication: PRODUCT USED FOR UNKNOWN INDICATION
     Dosage: UNK
     Route: 048

REACTIONS (10)
  - Pulmonary embolism [Recovered/Resolved]
  - Blood glucose increased [Recovered/Resolved]
  - Overdose [Recovered/Resolved]
  - Hypotension [Recovered/Resolved]
  - Bradycardia [Recovered/Resolved]
  - Abdominal pain [Recovered/Resolved]
  - Ileus [Recovered/Resolved]
  - Renal failure [Recovered/Resolved]
  - Arterial thrombosis [Recovered/Resolved]
  - Peripheral ischaemia [Recovered/Resolved]
